FAERS Safety Report 25028197 (Version 2)
Quarter: 2025Q2

REPORT INFORMATION
  Report Type: Spontaneous
  Country: US (occurrence: US)
  Receive Date: 20250301
  Receipt Date: 20250417
  Transmission Date: 20250716
  Serious: No
  Sender: SANOFI AVENTIS
  Company Number: US-SA-2025SA057861

PATIENT
  Age: 34 Year
  Sex: Male

DRUGS (1)
  1. DUPIXENT [Suspect]
     Active Substance: DUPILUMAB
     Indication: Dermatitis atopic
     Dosage: 300 MG, QOW
     Route: 058
     Dates: start: 202410, end: 202501

REACTIONS (7)
  - Superficial injury of eye [Unknown]
  - Photophobia [Recovered/Resolved]
  - Ocular hyperaemia [Unknown]
  - Eye pruritus [Recovered/Resolved]
  - Condition aggravated [Recovered/Resolved]
  - Dry eye [Recovered/Resolved]
  - Drug ineffective [Unknown]

NARRATIVE: CASE EVENT DATE: 20250101
